FAERS Safety Report 6059056-5 (Version None)
Quarter: 2009Q1

REPORT INFORMATION
  Report Type: 
  Country: None (occurrence: None)
  Receive Date: 20090130
  Receipt Date: 20090119
  Transmission Date: 20090719
  Serious: Yes (Hospitalization)
  Sender: FDA-Public Use
  Company Number: B0555082A

PATIENT
  Age: 84 Year
  Sex: Female
  Weight: 70 kg

DRUGS (8)
  1. DEROXAT [Suspect]
     Route: 065
     Dates: start: 20040101, end: 20081008
  2. EFFEXOR [Suspect]
     Dosage: 75MG PER DAY
     Route: 065
     Dates: start: 20081008, end: 20081030
  3. MODOPAR [Suspect]
     Indication: PARKINSON'S DISEASE
     Dosage: 125MG TWICE PER DAY
     Route: 048
     Dates: start: 20030101, end: 20081021
  4. BROMAZEPAM [Suspect]
     Dosage: 1.5MG TWICE PER DAY
     Route: 065
     Dates: end: 20081021
  5. RISPERDAL [Suspect]
     Dosage: 1MG PER DAY
     Route: 048
     Dates: start: 20081021, end: 20081030
  6. LEVOTHYROX [Concomitant]
     Indication: HYPOTHYROIDISM
     Dosage: 100MCG PER DAY
     Route: 048
  7. BAYPRESS [Concomitant]
     Dosage: 10MG PER DAY
     Route: 048
  8. COZAAR [Concomitant]
     Dosage: 50MG PER DAY
     Route: 048
     Dates: start: 20010101

REACTIONS (10)
  - ABNORMAL BEHAVIOUR [None]
  - DISORIENTATION [None]
  - EXTRASYSTOLES [None]
  - FALL [None]
  - GENERAL PHYSICAL HEALTH DETERIORATION [None]
  - HALLUCINATION, VISUAL [None]
  - HEAD INJURY [None]
  - HYPERNATRAEMIA [None]
  - MANIA [None]
  - TREMOR [None]
